FAERS Safety Report 7475401-8 (Version None)
Quarter: 2011Q2

REPORT INFORMATION
  Report Type: 
  Country: None (occurrence: None)
  Receive Date: 20110512
  Receipt Date: 20110509
  Transmission Date: 20111010
  Serious: No
  Sender: FDA-Public Use
  Company Number: GB-ABBOTT-11P-167-0719053-00

PATIENT
  Weight: 79.2 kg

DRUGS (3)
  1. OMEPRAZOLE [Concomitant]
     Indication: GASTROOESOPHAGEAL REFLUX DISEASE
     Route: 048
     Dates: start: 20050101
  2. COD LIVER OIL [Concomitant]
     Indication: ARTHRITIS
     Route: 048
     Dates: start: 20070101
  3. HUMIRA [Suspect]
     Indication: CROHN'S DISEASE
     Dates: start: 20101001

REACTIONS (4)
  - HEADACHE [None]
  - TINNITUS [None]
  - ALOPECIA [None]
  - ARTHRALGIA [None]
